FAERS Safety Report 16596262 (Version 1)
Quarter: 2019Q3

REPORT INFORMATION
  Report Type: Spontaneous
  Country: DE (occurrence: DE)
  Receive Date: 20190719
  Receipt Date: 20190719
  Transmission Date: 20191004
  Serious: Yes (Hospitalization)
  Sender: FDA-Public Use
  Company Number: DE-TEVA-2019-DE-1077990

PATIENT
  Age: 64 Year
  Sex: Female

DRUGS (13)
  1. OXALIPLATIN. [Suspect]
     Active Substance: OXALIPLATIN
     Dosage: NK MG, LAST SEEN ON JAN 19, 2018
     Route: 065
  2. IRINOTECAN [Suspect]
     Active Substance: IRINOTECAN
     Dosage: NK MG, LAST SEEN ON JAN 19, 2018
     Route: 065
  3. FLUOROURACIL. [Suspect]
     Active Substance: FLUOROURACIL
     Dosage: NK MG, LAST SEEN ON JAN 19, 2018
     Route: 065
  4. ENOXAPARIN [Concomitant]
     Active Substance: ENOXAPARIN
     Dosage: 0.4 MG, 1-0-1-0
     Route: 058
  5. FOLSAEURE [Concomitant]
     Active Substance: FOLIC ACID
     Dosage: 5 MG, 1-0-0-0
  6. ONDANSETRON [Concomitant]
     Active Substance: ONDANSETRON
     Dosage: 8 MG, 1-1-1-0
  7. PANKREATIN (VOM SCHWEIN) [Concomitant]
     Dosage: 25000 IE, 1-1-1-0
  8. METOCLOPRAMID [Concomitant]
     Active Substance: METOCLOPRAMIDE
     Dosage: 10 MG, UP TO 3X/D IF NEEDED
  9. KALIUM [Concomitant]
     Active Substance: POTASSIUM CHLORIDE
     Dosage: NK MG, 1-1-1-0
  10. PANTOPRAZOL [Concomitant]
     Active Substance: PANTOPRAZOLE SODIUM
     Dosage: 40 MG, 1-0-0-0
  11. COLECALCIFEROL [Concomitant]
     Active Substance: CHOLECALCIFEROL
     Dosage: 1000 IE, 1-0-0-0
  12. ONDANSETRON [Concomitant]
     Active Substance: ONDANSETRON
     Dosage: 8 MG, DEMAND UP TO 2X/D IF MCP IS NOT SUFFICIENT
  13. BUTYLSCOPOLAMIN [Concomitant]
     Dosage: NK MG, DEMAND UP TO 3X/D 2 DRAGEES

REACTIONS (5)
  - Chills [Unknown]
  - Pyrexia [Unknown]
  - Pain [Unknown]
  - Dysphagia [Unknown]
  - Headache [Unknown]
